FAERS Safety Report 19212474 (Version 1)
Quarter: 2021Q2

REPORT INFORMATION
  Report Type: Spontaneous
  Country: US (occurrence: US)
  Receive Date: 20210504
  Receipt Date: 20210504
  Transmission Date: 20210717
  Serious: Yes (Disabling)
  Sender: FDA-Public Use
  Company Number: None

PATIENT
  Age: 65 Year
  Sex: Female
  Weight: 70.65 kg

DRUGS (3)
  1. LEVOTHYROXIN [Concomitant]
     Active Substance: LEVOTHYROXINE
  2. CIPRO [Suspect]
     Active Substance: CIPROFLOXACIN HYDROCHLORIDE
     Indication: ANTIBIOTIC PROPHYLAXIS
  3. VYVANSE [Concomitant]
     Active Substance: LISDEXAMFETAMINE DIMESYLATE

REACTIONS (28)
  - Tremor [None]
  - Irritability [None]
  - Anger [None]
  - Dry skin [None]
  - Bedridden [None]
  - Muscle spasms [None]
  - Paranasal sinus inflammation [None]
  - Vomiting [None]
  - Alopecia [None]
  - Cognitive disorder [None]
  - Nausea [None]
  - Panic attack [None]
  - Neck pain [None]
  - Burning sensation [None]
  - Blepharitis [None]
  - Dry eye [None]
  - Muscle atrophy [None]
  - Pain in extremity [None]
  - Limb discomfort [None]
  - Blindness [None]
  - Binge eating [None]
  - Fatigue [None]
  - Asthenia [None]
  - Tendon pain [None]
  - Tooth injury [None]
  - Amnesia [None]
  - Autonomic nervous system imbalance [None]
  - Tendon rupture [None]

NARRATIVE: CASE EVENT DATE: 20181130
